FAERS Safety Report 4652588-3 (Version None)
Quarter: 2005Q2

REPORT INFORMATION
  Report Type: 
  Country: None (occurrence: None)
  Receive Date: 20050504
  Receipt Date: 20050421
  Transmission Date: 20051028
  Serious: Yes (Other)
  Sender: FDA-Public Use
  Company Number: GB-JNJFOC-20041007637

PATIENT
  Age: 29 Year
  Sex: Male

DRUGS (7)
  1. RISPERDAL [Suspect]
     Route: 049
  2. RISPERDAL [Suspect]
     Indication: SCHIZOPHRENIA
     Dosage: 1.5MG
     Route: 049
  3. CLOZAPINE [Suspect]
     Indication: SCHIZOPHRENIA
     Route: 049
  4. RANITIDINE [Suspect]
  5. GABAPENTIN [Suspect]
     Indication: MOOD ALTERED
     Route: 049
  6. LAMOTRIGINE [Suspect]
     Route: 049
  7. LAMOTRIGINE [Suspect]
     Indication: MOOD ALTERED
     Route: 049

REACTIONS (1)
  - NEUTROPENIA [None]
